FAERS Safety Report 21232174 (Version 1)
Quarter: 2022Q3

REPORT INFORMATION
  Report Type: Spontaneous
  Country: US (occurrence: None)
  Receive Date: 20220818
  Receipt Date: 20220818
  Transmission Date: 20221027
  Serious: Yes (Life-Threatening, Hospitalization, Disabling)
  Sender: FDA-Public Use
  Company Number: None

PATIENT
  Age: 67 Year
  Sex: Male
  Weight: 121.5 kg

DRUGS (9)
  1. CITROMA [Suspect]
     Active Substance: MAGNESIUM CITRATE
     Indication: Constipation
     Dosage: OTHER STRENGTH : 10 OZ;?OTHER QUANTITY : 10 OUNCE(S);?FREQUENCY : AS NEEDED;?
     Route: 048
  2. HUMALOG [Concomitant]
     Active Substance: INSULIN LISPRO
  3. LANTUS [Concomitant]
     Active Substance: INSULIN GLARGINE
  4. SIMVASTATIN [Concomitant]
     Active Substance: SIMVASTATIN
  5. EZETIMIBE [Concomitant]
     Active Substance: EZETIMIBE
  6. DILTIAZEM [Concomitant]
     Active Substance: DILTIAZEM
  7. VITAMINS [Concomitant]
     Active Substance: VITAMINS
  8. MAGNESIUM [Concomitant]
     Active Substance: MAGNESIUM
  9. GLUCOSAMINE [Concomitant]
     Active Substance: GLUCOSAMINE

REACTIONS (7)
  - Recalled product administered [None]
  - Clostridium difficile colitis [None]
  - Sepsis [None]
  - Renal failure [None]
  - Kidney infection [None]
  - Atrial fibrillation [None]
  - Near death experience [None]

NARRATIVE: CASE EVENT DATE: 20220406
